FAERS Safety Report 5360051-X (Version None)
Quarter: 2007Q2

REPORT INFORMATION
  Report Type: 
  Country: None (occurrence: None)
  Receive Date: 20070618
  Receipt Date: 20060918
  Transmission Date: 20071010
  Serious: No
  Sender: FDA-Public Use
  Company Number: US-ASTRAZENECA-2006UW18258

PATIENT
  Age: 49 Year
  Sex: Female
  Weight: 69.9 kg

DRUGS (4)
  1. FASLODEX [Suspect]
     Indication: BREAST CANCER FEMALE
     Route: 030
     Dates: start: 20060301
  2. ZOMETTA [Concomitant]
     Dosage: EVERY OTHER MONTH
  3. TAMOXIFEN CITRATE [Concomitant]
     Route: 048
  4. ARIMIDEX [Concomitant]
     Route: 048

REACTIONS (3)
  - MYALGIA [None]
  - NAUSEA [None]
  - TUMOUR MARKER INCREASED [None]
